FAERS Safety Report 9169646 (Version 2)
Quarter: 2013Q3

REPORT INFORMATION
  Report Type: Spontaneous
  Country: FR (occurrence: FR)
  Receive Date: 20130318
  Receipt Date: 20130906
  Transmission Date: 20140515
  Serious: Yes (Other)
  Sender: FDA-Public Use
  Company Number: FR-UCBSA-080582

PATIENT
  Sex: Female
  Weight: 3.19 kg

DRUGS (9)
  1. KEPPRA [Suspect]
     Indication: MYOCLONIC EPILEPSY
     Route: 064
     Dates: start: 201302, end: 20130527
  2. KEPPRA [Suspect]
     Indication: MYOCLONIC EPILEPSY
     Dosage: 1.5MG DAILY
     Route: 064
     Dates: start: 2012, end: 201302
  3. ATARAX [Suspect]
     Indication: PRURITUS
     Dosage: 25MG DAILY
     Route: 064
     Dates: start: 20130219, end: 20130226
  4. ATARAX [Suspect]
     Indication: INSOMNIA
     Dosage: 25MG DAILY
     Route: 064
     Dates: start: 20130219, end: 20130226
  5. FUMAFER [Concomitant]
     Indication: MINERAL SUPPLEMENTATION
     Dosage: 80MG DAILY
     Route: 064
     Dates: start: 201302, end: 20130527
  6. FOLIC ACID [Concomitant]
     Indication: VITAMIN SUPPLEMENTATION
     Dosage: 5MG DAILY
     Route: 064
     Dates: start: 201211, end: 20130527
  7. LAMICTAL [Concomitant]
     Indication: EPILEPSY
     Dosage: DAILY
     Route: 064
     Dates: start: 20130306, end: 2013
  8. LAMICTAL [Concomitant]
     Indication: EPILEPSY
     Dosage: PROGRESSIVELY INCREASED TO 150MG
     Route: 064
     Dates: start: 2013, end: 20130527
  9. DAFALGAN [Concomitant]
     Indication: PAIN
     Route: 064

REACTIONS (2)
  - Foetal exposure during pregnancy [Recovered/Resolved]
  - Foetal arrhythmia [Recovered/Resolved]
